FAERS Safety Report 13240581 (Version 4)
Quarter: 2017Q1

REPORT INFORMATION
  Report Type: Report from Study
  Country: US (occurrence: US)
  Receive Date: 20170216
  Receipt Date: 20170329
  Transmission Date: 20170428
  Serious: Yes (Hospitalization, Other)
  Sender: FDA-Public Use
  Company Number: US-GILEAD-2017-0251761

PATIENT
  Age: 73 Year
  Sex: Female

DRUGS (2)
  1. IDELALISIB [Suspect]
     Active Substance: IDELALISIB
     Indication: CHRONIC LYMPHOCYTIC LEUKAEMIA
     Dosage: 150 MG, BID
     Route: 048
     Dates: start: 20161229, end: 20170130
  2. IDELALISIB [Suspect]
     Active Substance: IDELALISIB
     Indication: NON-HODGKIN^S LYMPHOMA
     Dosage: 100 MG, BID
     Route: 048
     Dates: start: 20170209

REACTIONS (8)
  - Bronchitis [Unknown]
  - Fatigue [Recovering/Resolving]
  - Back pain [Unknown]
  - Rash pruritic [Recovering/Resolving]
  - Fungal infection [Recovering/Resolving]
  - Oral pain [Not Recovered/Not Resolved]
  - Asthenia [Recovering/Resolving]
  - Tooth infection [Unknown]

NARRATIVE: CASE EVENT DATE: 201612
